FAERS Safety Report 10732918 (Version 2)
Quarter: 2015Q1

REPORT INFORMATION
  Report Type: Spontaneous
  Country: NZ (occurrence: NZ)
  Receive Date: 20150123
  Receipt Date: 20150129
  Transmission Date: 20150721
  Serious: Yes (Death)
  Sender: FDA-Public Use
  Company Number: NZ-009507513-1501NZL008826

PATIENT
  Age: 83 Year
  Sex: Male

DRUGS (5)
  1. ROXITHROMYCIN [Interacting]
     Active Substance: ROXITHROMYCIN
     Dosage: 300 MG, UNK
     Route: 048
     Dates: start: 20120820, end: 20120821
  2. CEFUROXIME. [Interacting]
     Active Substance: CEFUROXIME
     Dosage: ROUTE: ^SY^
     Dates: start: 20120815, end: 201208
  3. SIMVASTATIN. [Suspect]
     Active Substance: SIMVASTATIN
     Dosage: 20 MG, UNK
     Route: 048
     Dates: end: 20120821
  4. PREDNISONE. [Interacting]
     Active Substance: PREDNISONE
     Dosage: UNK
     Route: 048
     Dates: start: 20120815, end: 201208
  5. AZITHROMYCIN [Interacting]
     Active Substance: AZITHROMYCIN ANHYDROUS
     Dosage: UNK
     Route: 048
     Dates: start: 201208, end: 201208

REACTIONS (3)
  - Hepatic failure [Fatal]
  - Drug interaction [Fatal]
  - Rhabdomyolysis [Fatal]

NARRATIVE: CASE EVENT DATE: 201302
